FAERS Safety Report 15655477 (Version 6)
Quarter: 2019Q3

REPORT INFORMATION
  Report Type: Spontaneous
  Country: CA (occurrence: CA)
  Receive Date: 20181126
  Receipt Date: 20190903
  Transmission Date: 20191004
  Serious: Yes (Hospitalization, Other)
  Sender: FDA-Public Use
  Company Number: CA-TEVA-2018-CA-979432

PATIENT
  Age: 56 Year
  Sex: Male

DRUGS (12)
  1. GLICLAZIDE MR [Concomitant]
     Active Substance: GLICLAZIDE
  2. FLUCONAZOLE. [Interacting]
     Active Substance: FLUCONAZOLE
     Indication: FUNGAL INFECTION
  3. HUMALOG [Concomitant]
     Active Substance: INSULIN LISPRO
  4. METFORMIN [Concomitant]
     Active Substance: METFORMIN HYDROCHLORIDE
     Dosage: 2500 MILLIGRAM DAILY;
     Route: 048
  5. VORICONAZOLE. [Interacting]
     Active Substance: VORICONAZOLE
     Indication: PNEUMONIA FUNGAL
     Dosage: 400 MILLIGRAM DAILY;
     Route: 048
  6. INSULIN GLARGINE [Concomitant]
     Active Substance: INSULIN GLARGINE
     Indication: TYPE 2 DIABETES MELLITUS
     Dosage: 18 IU (INTERNATIONAL UNIT) DAILY;
     Route: 058
  7. METFORMIN [Concomitant]
     Active Substance: METFORMIN HYDROCHLORIDE
     Indication: TYPE 2 DIABETES MELLITUS
     Route: 048
  8. PREDNISONE. [Concomitant]
     Active Substance: PREDNISONE
     Indication: IMMUNOSUPPRESSION
     Dosage: 5 MILLIGRAM DAILY;
     Route: 048
  9. INSULIN LISPRO [Concomitant]
     Active Substance: INSULIN LISPRO
     Indication: TYPE 2 DIABETES MELLITUS
     Dosage: 6 IU (INTERNATIONAL UNIT) DAILY;
     Route: 058
  10. FLUCONAZOLE. [Suspect]
     Active Substance: FLUCONAZOLE
     Indication: PNEUMONIA FUNGAL
     Dosage: 480 MILLIGRAM DAILY;
     Route: 048
  11. VORICONAZOLE. [Interacting]
     Active Substance: VORICONAZOLE
     Route: 048
  12. GLICLAZIDE [Suspect]
     Active Substance: GLICLAZIDE
     Indication: TYPE 2 DIABETES MELLITUS
     Dosage: 90 MILLIGRAM DAILY;
     Route: 048

REACTIONS (13)
  - Toxicity to various agents [Recovered/Resolved]
  - Keratitis fungal [Recovered/Resolved]
  - Drug interaction [Recovered/Resolved]
  - Hypoglycaemia [Recovered/Resolved]
  - Enzyme inhibition [Recovered/Resolved]
  - Labelled drug-drug interaction medication error [Recovered/Resolved]
  - Potentiating drug interaction [Recovered/Resolved]
  - Corneal perforation [Recovered/Resolved]
  - Visual impairment [Recovered/Resolved]
  - Hallucination [Recovered/Resolved]
  - Lethargy [Recovered/Resolved]
  - Accidental overdose [Recovered/Resolved]
  - Product use in unapproved indication [Recovered/Resolved]
